FAERS Safety Report 5003412-0 (Version None)
Quarter: 2006Q2

REPORT INFORMATION
  Report Type: 
  Country: None (occurrence: None)
  Receive Date: 20060511
  Receipt Date: 20060427
  Transmission Date: 20061013
  Serious: Yes (Hospitalization)
  Sender: FDA-Public Use
  Company Number: 13983

PATIENT
  Age: 65 Year
  Sex: Female

DRUGS (5)
  1. HYDROCORTISONE [Suspect]
     Dosage: 50 MG TID
     Dates: start: 20030101
  2. DICLOFENAC POTASSIUM [Suspect]
     Dosage: 50 MG TID
     Dates: start: 20030101
  3. METHOTREXATE [Suspect]
     Dosage: 7.5 MG WEEKLY
     Dates: start: 20050101
  4. RANITIDINE [Suspect]
     Dosage: 150 MG BID
     Dates: start: 20030101
  5. FOLIC ACID [Suspect]
     Dosage: 5 MG QD
     Dates: start: 20030101

REACTIONS (9)
  - ABDOMINAL PAIN LOWER [None]
  - ABDOMINAL SEPSIS [None]
  - ACUTE ABDOMEN [None]
  - COLONIC STENOSIS [None]
  - GASTROINTESTINAL DISORDER [None]
  - LARGE INTESTINE PERFORATION [None]
  - MUCOSAL ULCERATION [None]
  - PNEUMOPERITONEUM [None]
  - VOMITING [None]
